FAERS Safety Report 9360138 (Version 1)
Quarter: 2013Q2

REPORT INFORMATION
  Report Type: Spontaneous
  Country: TR (occurrence: TR)
  Receive Date: 20130621
  Receipt Date: 20130621
  Transmission Date: 20140414
  Serious: Yes (Death, Hospitalization)
  Sender: FDA-Public Use
  Company Number: TR-INDICUS PHARMA-000094

PATIENT
  Age: 17 Year
  Sex: Female

DRUGS (3)
  1. METFORMIN HYDROCHLORIDE [Suspect]
     Dosage: TOOK 75 PILLS OF METFORMIN?1000 MG
  2. RUPATADINE [Interacting]
     Dosage: 20 PILLS OF RUPATADINE 10 MG
  3. AMITRIPTYLINE [Concomitant]
     Indication: MAJOR DEPRESSION

REACTIONS (6)
  - Completed suicide [Fatal]
  - Toxicity to various agents [Fatal]
  - Lactic acidosis [Unknown]
  - Drug interaction [Unknown]
  - Ventricular tachycardia [Fatal]
  - Lethargy [None]
